FAERS Safety Report 22964645 (Version 2)
Quarter: 2023Q4

REPORT INFORMATION
  Report Type: Spontaneous
  Country: CO (occurrence: CO)
  Receive Date: 20230921
  Receipt Date: 20231114
  Transmission Date: 20240110
  Serious: Yes (Hospitalization, Other)
  Sender: FDA-Public Use
  Company Number: CO-SA-SAC20230919000476

PATIENT
  Age: 71 Year
  Sex: Female

DRUGS (1)
  1. PRALUENT [Suspect]
     Active Substance: ALIROCUMAB
     Indication: Type IIa hyperlipidaemia
     Dosage: 75 MG, QOW
     Route: 058
     Dates: start: 20230818

REACTIONS (2)
  - Implantable defibrillator insertion [Unknown]
  - Arrhythmia [Unknown]

NARRATIVE: CASE EVENT DATE: 20230826
